FAERS Safety Report 10082280 (Version 2)
Quarter: 2015Q1

REPORT INFORMATION
  Report Type: Spontaneous
  Country: DE (occurrence: DE)
  Receive Date: 20140416
  Receipt Date: 20140416
  Transmission Date: 20150720
  Serious: Yes (Death, Other)
  Sender: FDA-Public Use
  Company Number: DE-ACTAVIS-2014-07215

PATIENT
  Age: 52 Year
  Sex: Female

DRUGS (12)
  1. METOPROLOL (UNKNOWN) [Interacting]
     Active Substance: METOPROLOL
     Indication: PRODUCT USED FOR UNKNOWN INDICATION
     Dosage: UNK
     Route: 065
  2. TILIDINE [Interacting]
     Active Substance: TILIDINE
     Indication: PRODUCT USED FOR UNKNOWN INDICATION
     Dosage: UNK
     Route: 065
  3. AMLODIPINE [Interacting]
     Active Substance: AMLODIPINE BESYLATE
     Indication: PRODUCT USED FOR UNKNOWN INDICATION
     Dosage: 2.5 MG, DAILY
     Route: 065
  4. OLANZAPINE (UNKNOWN) [Interacting]
     Active Substance: OLANZAPINE
     Indication: PRODUCT USED FOR UNKNOWN INDICATION
     Dosage: UNK
     Route: 065
  5. DOXEPIN (WATSON LABORATORIES) [Interacting]
     Active Substance: DOXEPIN
     Dosage: 25 MG, DAILY
     Route: 065
  6. AMLODIPINE [Interacting]
     Active Substance: AMLODIPINE BESYLATE
     Dosage: 10 MG, DAILY
     Route: 065
  7. DOXEPIN (WATSON LABORATORIES) [Interacting]
     Active Substance: DOXEPIN
     Indication: PRODUCT USED FOR UNKNOWN INDICATION
     Dosage: 125 MG, DAILY
     Route: 065
  8. DIAZEPAM (UNKNOWN) [Interacting]
     Active Substance: DIAZEPAM
     Indication: PRODUCT USED FOR UNKNOWN INDICATION
     Dosage: UNK
     Route: 065
  9. IBUPROFEN (UNKNOWN) [Suspect]
     Active Substance: IBUPROFEN
     Indication: PRODUCT USED FOR UNKNOWN INDICATION
     Dosage: UNK
     Route: 065
  10. DOXEPIN (WATSON LABORATORIES) [Interacting]
     Active Substance: DOXEPIN
     Dosage: 100 MG, DAILY
     Route: 065
  11. AMLODIPINE [Interacting]
     Active Substance: AMLODIPINE BESYLATE
     Dosage: 7.5 MG, DAILY
     Route: 065
  12. PROTHIPENDYL [Interacting]
     Active Substance: PROTHIPENDYL
     Indication: PRODUCT USED FOR UNKNOWN INDICATION
     Dosage: DOSAGE GIVEN IN THE EVENING WAS DOUBLED ON 3 OF THE LAST 5 DAYS BEFORE DEATH
     Route: 065

REACTIONS (8)
  - Drooling [Unknown]
  - Drug interaction [Fatal]
  - Toxicity to various agents [Fatal]
  - Somnolence [Unknown]
  - Sleep disorder [Unknown]
  - Gait disturbance [Unknown]
  - Apathy [Unknown]
  - Pain [Unknown]
